FAERS Safety Report 16993098 (Version 1)
Quarter: 2019Q4

REPORT INFORMATION
  Report Type: Spontaneous
  Country: US (occurrence: US)
  Receive Date: 20191105
  Receipt Date: 20191105
  Transmission Date: 20200122
  Serious: Yes (Death, Life-Threatening, Other)
  Sender: FDA-Public Use
  Company Number: US-HIKMA PHARMACEUTICALS USA INC.-US-H14001-19-49612

PATIENT
  Age: 19 Year
  Sex: Female

DRUGS (3)
  1. CYCLOPROPYLFENTANYL [Suspect]
     Active Substance: CYCLOPROPYLFENTANYL
     Indication: PRODUCT USED FOR UNKNOWN INDICATION
     Route: 065
  2. FLUOXETINE [Concomitant]
     Active Substance: FLUOXETINE HYDROCHLORIDE
     Indication: PRODUCT USED FOR UNKNOWN INDICATION
     Route: 065
  3. ALPRAZOLAM. [Suspect]
     Active Substance: ALPRAZOLAM
     Indication: PRODUCT USED FOR UNKNOWN INDICATION
     Route: 065

REACTIONS (5)
  - Pulmonary oedema [Not Recovered/Not Resolved]
  - Pulseless electrical activity [Fatal]
  - Pulmonary congestion [Not Recovered/Not Resolved]
  - Toxicity to various agents [Fatal]
  - Apnoea [Fatal]
